FAERS Safety Report 25717750 (Version 4)
Quarter: 2025Q3

REPORT INFORMATION
  Report Type: Spontaneous
  Country: CR (occurrence: CR)
  Receive Date: 20250822
  Receipt Date: 20250911
  Transmission Date: 20251021
  Serious: Yes (Death, Other)
  Sender: MERCK SHARP & DOHME LLC
  Company Number: CR-009507513-2321209

PATIENT
  Age: 68 Year
  Sex: Male

DRUGS (13)
  1. PEMBROLIZUMAB [Suspect]
     Active Substance: PEMBROLIZUMAB
     Indication: Metastatic malignant melanoma
     Dates: start: 20250725, end: 20250725
  2. PEMBROLIZUMAB [Suspect]
     Active Substance: PEMBROLIZUMAB
     Indication: Metastatic malignant melanoma
     Dates: start: 20250816, end: 20250816
  3. OMEPRAZOLE [Concomitant]
     Active Substance: OMEPRAZOLE
  4. ONDANSETRON [Concomitant]
     Active Substance: ONDANSETRON
  5. DEXAMETHASONE [Concomitant]
     Active Substance: DEXAMETHASONE
  6. PREDNISONE [Concomitant]
     Active Substance: PREDNISONE
  7. ENALAPRIL [Concomitant]
     Active Substance: ENALAPRIL
  8. FOLIC ACID [Concomitant]
     Active Substance: FOLIC ACID
  9. ALLOPURINOL [Concomitant]
     Active Substance: ALLOPURINOL
  10. ROSUVASTATIN [Concomitant]
     Active Substance: ROSUVASTATIN
  11. DAPAGLIFLOZIN [Concomitant]
     Active Substance: DAPAGLIFLOZIN
  12. NEPRO BP [Concomitant]
  13. KAYEXALATE [Concomitant]
     Active Substance: SODIUM POLYSTYRENE SULFONATE

REACTIONS (10)
  - Respiratory failure [Fatal]
  - Delirium [Unknown]
  - Partial seizures [Unknown]
  - Inappropriate schedule of product administration [Unknown]
  - Panic attack [Unknown]
  - Central nervous system lesion [Unknown]
  - Haemorrhagic stroke [Unknown]
  - Hypotension [Unknown]
  - Fall [Unknown]
  - Seizure [Unknown]

NARRATIVE: CASE EVENT DATE: 20250801
